FAERS Safety Report 17165519 (Version 1)
Quarter: 2019Q4

REPORT INFORMATION
  Report Type: Spontaneous
  Country: NL (occurrence: NL)
  Receive Date: 20191217
  Receipt Date: 20191217
  Transmission Date: 20200122
  Serious: Yes (Life-Threatening, Hospitalization)
  Sender: FDA-Public Use
  Company Number: NL-ASTRAZENECA-2019SF78984

PATIENT
  Age: 67 Year
  Sex: Female
  Weight: 125 kg

DRUGS (9)
  1. INSULINE DEGLUDEC [Concomitant]
     Active Substance: INSULIN DEGLUDEC
     Dosage: 1.0DF UNKNOWN
  2. METOPROLOL. [Concomitant]
     Active Substance: METOPROLOL
  3. NOVORAPID [Concomitant]
     Active Substance: INSULIN ASPART
  4. FORXIGA [Suspect]
     Active Substance: DAPAGLIFLOZIN
     Indication: DIABETES MELLITUS
     Route: 048
     Dates: start: 2014, end: 20191127
  5. GLIMEPIRIDE. [Concomitant]
     Active Substance: GLIMEPIRIDE
  6. CANDESARTAN. [Concomitant]
     Active Substance: CANDESARTAN
  7. SIMVASTATINE [Concomitant]
     Active Substance: SIMVASTATIN
  8. SEMAGLUTIDE [Concomitant]
     Active Substance: SEMAGLUTIDE
     Dosage: 1.0DF UNKNOWN
  9. METFORMINE [Concomitant]
     Active Substance: METFORMIN HYDROCHLORIDE

REACTIONS (2)
  - Metabolic acidosis [Recovering/Resolving]
  - Diabetic ketoacidosis [Recovering/Resolving]

NARRATIVE: CASE EVENT DATE: 20191128
